FAERS Safety Report 8308630-1 (Version None)
Quarter: 2012Q2

REPORT INFORMATION
  Report Type: 
  Country: None (occurrence: None)
  Receive Date: 20120424
  Receipt Date: 20120417
  Transmission Date: 20120825
  Serious: Yes (Hospitalization)
  Sender: FDA-Public Use
  Company Number: CN-ROCHE-1062317

PATIENT
  Age: 50 Year
  Sex: Female
  Weight: 65.5 kg

DRUGS (3)
  1. XELODA [Suspect]
     Indication: GASTROINTESTINAL CARCINOMA
  2. OXALIPLATIN [Concomitant]
     Indication: GASTROINTESTINAL CARCINOMA
  3. AVASTIN [Suspect]
     Indication: GASTROINTESTINAL CARCINOMA

REACTIONS (1)
  - INTESTINAL PERFORATION [None]
